FAERS Safety Report 18467395 (Version 1)
Quarter: 2020Q4

REPORT INFORMATION
  Report Type: Spontaneous
  Country: US (occurrence: US)
  Receive Date: 20201105
  Receipt Date: 20201105
  Transmission Date: 20210114
  Serious: No
  Sender: FDA-Public Use
  Company Number: US-ADAREPHARM-2020-US-000074

PATIENT
  Sex: Male

DRUGS (1)
  1. DEXMETHYLPHENIDATE HCL [Suspect]
     Active Substance: DEXMETHYLPHENIDATE HYDROCHLORIDE
     Route: 048

REACTIONS (2)
  - Product physical issue [Unknown]
  - Drug ineffective [Unknown]
